FAERS Safety Report 12675124 (Version 2)
Quarter: 2017Q3

REPORT INFORMATION
  Report Type: Spontaneous
  Country: US (occurrence: US)
  Receive Date: 20160822
  Receipt Date: 20170717
  Transmission Date: 20171127
  Serious: No
  Sender: FDA-Public Use
  Company Number: US-ACTELION-A-US2016-140865

PATIENT
  Age: 63 Year
  Sex: Male

DRUGS (5)
  1. TARGRETIN [Concomitant]
     Active Substance: BEXAROTENE
  2. VALCHLOR [Suspect]
     Active Substance: MECHLORETHAMINE
     Indication: MYCOSIS FUNGOIDES
     Dosage: UNK, QD
     Route: 061
     Dates: start: 20160714
  3. FENOFIBRATE. [Concomitant]
     Active Substance: FENOFIBRATE
  4. SYNTHROID [Concomitant]
     Active Substance: LEVOTHYROXINE SODIUM
  5. MOTRIN [Concomitant]
     Active Substance: IBUPROFEN

REACTIONS (3)
  - Wrong technique in product usage process [Unknown]
  - Application site pain [Unknown]
  - Condition aggravated [Unknown]
